FAERS Safety Report 19755086 (Version 4)
Quarter: 2024Q1

REPORT INFORMATION
  Report Type: Other
  Country: PT (occurrence: PT)
  Receive Date: 20210827
  Receipt Date: 20240329
  Transmission Date: 20240410
  Serious: Yes (Other)
  Sender: FDA-Public Use
  Company Number: PT-NAPPMUNDI-GBR-2021-0089806

PATIENT
  Age: 19 Year
  Sex: Male

DRUGS (10)
  1. DIAZEPAM [Suspect]
     Active Substance: DIAZEPAM
     Indication: Myoclonus
     Route: 065
  2. MIDAZOLAM [Suspect]
     Active Substance: MIDAZOLAM
     Indication: Myoclonus
     Route: 065
  3. MIDAZOLAM [Suspect]
     Active Substance: MIDAZOLAM
     Indication: Sedation
  4. LEVETIRACETAM [Suspect]
     Active Substance: LEVETIRACETAM
     Indication: Myoclonus
     Route: 065
  5. ROCURONIUM [Suspect]
     Active Substance: ROCURONIUM BROMIDE
     Indication: Product used for unknown indication
     Route: 065
  6. MORPHINE SULFATE [Suspect]
     Active Substance: MORPHINE SULFATE
     Indication: Proctalgia
     Route: 065
  7. VALPROATE [Suspect]
     Active Substance: VALPROIC ACID
     Indication: Myoclonus
     Dosage: UNK
     Route: 065
  8. PROPOFOL [Suspect]
     Active Substance: PROPOFOL
     Indication: Myoclonus
     Route: 065
  9. PROPOFOL [Suspect]
     Active Substance: PROPOFOL
     Indication: Proctalgia
  10. PROPOFOL [Suspect]
     Active Substance: PROPOFOL
     Indication: Sedation

REACTIONS (4)
  - Electroencephalogram abnormal [Recovered/Resolved]
  - Drug ineffective [Unknown]
  - Dyskinesia [Recovered/Resolved]
  - Chills [Recovering/Resolving]
